FAERS Safety Report 18086744 (Version 1)
Quarter: 2020Q3

REPORT INFORMATION
  Report Type: Spontaneous
  Country: US (occurrence: US)
  Receive Date: 20200728
  Receipt Date: 20200728
  Transmission Date: 20201103
  Serious: Yes (Other)
  Sender: FDA-Public Use
  Company Number: None

PATIENT
  Age: 69 Year
  Sex: Female
  Weight: 55.35 kg

DRUGS (14)
  1. CYCLOPHOSPHAMIDE. [Suspect]
     Active Substance: CYCLOPHOSPHAMIDE
     Indication: PLASMA CELL MYELOMA
     Dosage: ?          OTHER FREQUENCY:ONCE WEEKLY;?
     Route: 048
     Dates: start: 20200630
  2. HYDROCHLOROTHIAZIDE. [Concomitant]
     Active Substance: HYDROCHLOROTHIAZIDE
  3. ONDANSETRON [Concomitant]
     Active Substance: ONDANSETRON
  4. VELCADE [Concomitant]
     Active Substance: BORTEZOMIB
  5. MULTIVITAMIN [Concomitant]
     Active Substance: VITAMINS
  6. VITAMIN D3 [Concomitant]
     Active Substance: CHOLECALCIFEROL
  7. DEXAMETHASONE. [Concomitant]
     Active Substance: DEXAMETHASONE
  8. CALCIUM [Concomitant]
     Active Substance: CALCIUM
  9. CYANOCOBALAMIN. [Concomitant]
     Active Substance: CYANOCOBALAMIN
  10. HYDROCORTISONE. [Concomitant]
     Active Substance: HYDROCORTISONE
  11. TYLENOL [Concomitant]
     Active Substance: ACETAMINOPHEN
  12. VALTREX [Concomitant]
     Active Substance: VALACYCLOVIR HYDROCHLORIDE
  13. VITAMIN B12 [Concomitant]
     Active Substance: CYANOCOBALAMIN
  14. LISINOPRIL. [Concomitant]
     Active Substance: LISINOPRIL

REACTIONS (3)
  - Pruritus [None]
  - Rash [None]
  - Alopecia [None]

NARRATIVE: CASE EVENT DATE: 20200728
